FAERS Safety Report 9655653 (Version 1)
Quarter: 2013Q4

REPORT INFORMATION
  Report Type: Report from Study
  Country: ID (occurrence: ID)
  Receive Date: 20131030
  Receipt Date: 20131030
  Transmission Date: 20140711
  Serious: Yes (Death, Other)
  Sender: FDA-Public Use
  Company Number: ID-ROCHE-1296261

PATIENT
  Age: 63 Year
  Sex: Female
  Weight: 60 kg

DRUGS (2)
  1. AVASTIN [Suspect]
     Indication: RECTAL CANCER
     Route: 042
     Dates: start: 20130820
  2. XELODA [Concomitant]
     Indication: RECTAL CANCER
     Route: 065

REACTIONS (3)
  - Death [Fatal]
  - Haemorrhage [Unknown]
  - Loss of consciousness [Unknown]
